FAERS Safety Report 9077855 (Version 1)
Quarter: 2013Q1

REPORT INFORMATION
  Report Type: Spontaneous
  Country: US (occurrence: US)
  Receive Date: 20130130
  Receipt Date: 20130130
  Transmission Date: 20140127
  Serious: No
  Sender: FDA-Public Use
  Company Number: US-ABBOTT-12P-163-0952190-00

PATIENT
  Sex: Female
  Weight: 113.5 kg

DRUGS (14)
  1. HUMIRA 40 MG/ 0.8 ML PRE-FILLED SYRINGE [Suspect]
     Indication: RHEUMATOID ARTHRITIS
     Route: 058
     Dates: start: 201205
  2. SYMBICORT [Concomitant]
     Indication: ASTHMA
  3. DILTIAZEM [Concomitant]
     Indication: CARDIAC DISORDER
  4. VESICARE [Concomitant]
     Indication: BLADDER DISORDER
  5. METHOTREXATE [Concomitant]
     Indication: RHEUMATOID ARTHRITIS
  6. PLAQUENIL [Concomitant]
     Indication: PRODUCT USED FOR UNKNOWN INDICATION
  7. OMEPRAZOLE [Concomitant]
     Indication: GASTROOESOPHAGEAL REFLUX DISEASE
  8. BENICAR HCT [Concomitant]
     Indication: BLOOD PRESSURE
     Route: 048
  9. METOPROLOL [Concomitant]
     Indication: HYPERTENSION
  10. LEVOTHYROXINE [Concomitant]
     Indication: THYROID FUNCTION TEST ABNORMAL
  11. WARFARIN [Concomitant]
     Indication: ARRHYTHMIA
     Dosage: 1 Q DAY WITH EXTRA 1/2 ON WEDNESDAY
  12. FERROUS SULFATE [Concomitant]
     Indication: PRODUCT USED FOR UNKNOWN INDICATION
  13. ESTRACE [Concomitant]
     Indication: HORMONE REPLACEMENT THERAPY
  14. MVI [Concomitant]
     Indication: PRODUCT USED FOR UNKNOWN INDICATION

REACTIONS (2)
  - Foot deformity [Unknown]
  - Pollakiuria [Not Recovered/Not Resolved]
